APPROVED DRUG PRODUCT: FLUOROURACIL
Active Ingredient: FLUOROURACIL
Strength: 5%
Dosage Form/Route: CREAM;TOPICAL
Application: A077524 | Product #001 | TE Code: AB
Applicant: DR REDDYS LABORATORIES SA
Approved: Apr 11, 2008 | RLD: No | RS: No | Type: RX